FAERS Safety Report 7846447-2 (Version None)
Quarter: 2011Q4

REPORT INFORMATION
  Report Type: 
  Country: None (occurrence: None)
  Receive Date: 20111025
  Receipt Date: 20111025
  Transmission Date: 20120403
  Serious: Yes (Other)
  Sender: FDA-Public Use
  Company Number: None

PATIENT
  Sex: Female
  Weight: 83.461 kg

DRUGS (2)
  1. SYNTHROID [Suspect]
     Indication: HYPOTHYROIDISM
     Dosage: 200 MCG
     Route: 048
     Dates: start: 20110510, end: 20110519
  2. SYNTHROID [Concomitant]
     Dosage: 200 MCG
     Route: 048
     Dates: start: 20111002, end: 20111004

REACTIONS (4)
  - MANIA [None]
  - PRODUCT LABEL ISSUE [None]
  - INSOMNIA [None]
  - NERVOUSNESS [None]
